FAERS Safety Report 5139104-7 (Version None)
Quarter: 2006Q4

REPORT INFORMATION
  Report Type: 
  Country: None (occurrence: None)
  Receive Date: 20061030
  Receipt Date: 20060621
  Transmission Date: 20070319
  Serious: No
  Sender: FDA-Public Use
  Company Number: US-GLAXOSMITHKLINE-A0609871A

PATIENT
  Age: 82 Year
  Sex: Female

DRUGS (10)
  1. ADVAIR HFA [Suspect]
     Indication: CHRONIC OBSTRUCTIVE PULMONARY DISEASE
     Dosage: 1PUFF TWICE PER DAY
     Route: 055
     Dates: start: 20060607
  2. AVAPRO [Concomitant]
  3. DYAZIDE [Concomitant]
  4. TENORMIN [Concomitant]
  5. SULAR [Concomitant]
  6. ZOCOR [Concomitant]
  7. ASACOL [Concomitant]
  8. ZOLOFT [Concomitant]
  9. TRENTAL [Concomitant]
  10. BENTYL [Concomitant]

REACTIONS (2)
  - DYSPHONIA [None]
  - TREATMENT NONCOMPLIANCE [None]
